FAERS Safety Report 17528190 (Version 1)
Quarter: 2020Q1

REPORT INFORMATION
  Report Type: Report from Study
  Country: AU (occurrence: AU)
  Receive Date: 20200311
  Receipt Date: 20200311
  Transmission Date: 20200409
  Serious: No
  Sender: FDA-Public Use
  Company Number: AU-TOLMAR, INC.-19AU000137

PATIENT
  Sex: Male

DRUGS (1)
  1. ELIGARD [Suspect]
     Active Substance: LEUPROLIDE ACETATE
     Indication: PROSTATE CANCER
     Dosage: 7.5 MG, QMONTH
     Route: 058
     Dates: start: 20190629

REACTIONS (4)
  - Obesity [Not Recovered/Not Resolved]
  - Dyspnoea [Unknown]
  - Depression [Not Recovered/Not Resolved]
  - Weight increased [Unknown]
